FAERS Safety Report 9631781 (Version 2)
Quarter: 2014Q1

REPORT INFORMATION
  Report Type: Spontaneous
  Country: DE (occurrence: DE)
  Receive Date: 20131018
  Receipt Date: 20140226
  Transmission Date: 20141002
  Serious: Yes (Other)
  Sender: FDA-Public Use
  Company Number: DE-B.I. PHARMACEUTICALS,INC./RIDGEFIELD-2013-BI-31744DE

PATIENT
  Age: 87 Year
  Sex: Female
  Weight: 65 kg

DRUGS (1)
  1. PRADAXA [Suspect]
     Indication: ATRIAL FIBRILLATION
     Dosage: 220 MG
     Route: 065

REACTIONS (5)
  - Bone contusion [Unknown]
  - Skull fracture [Unknown]
  - Laceration [Unknown]
  - Haemorrhage [Unknown]
  - Off label use [Unknown]
